FAERS Safety Report 16454590 (Version 1)
Quarter: 2019Q2

REPORT INFORMATION
  Report Type: Spontaneous
  Country: GB (occurrence: GB)
  Receive Date: 20190619
  Receipt Date: 20190619
  Transmission Date: 20190711
  Serious: Yes (Other)
  Sender: FDA-Public Use
  Company Number: GB-MYLANLABS-2019M1057074

PATIENT
  Age: 75 Year

DRUGS (2)
  1. AZATHIOPRINE. [Suspect]
     Active Substance: AZATHIOPRINE
     Indication: PRODUCT USED FOR UNKNOWN INDICATION
     Dosage: UNK
  2. ALLOPURINOL. [Interacting]
     Active Substance: ALLOPURINOL
     Indication: IMMUNOSUPPRESSION
     Dosage: STARTED ROUGHLY 6 WEEKS AGO
     Route: 048

REACTIONS (4)
  - Gout [Unknown]
  - Labelled drug-drug interaction medication error [Unknown]
  - Fatigue [Unknown]
  - Neutropenia [Unknown]
